FAERS Safety Report 13399656 (Version 1)
Quarter: 2017Q2

REPORT INFORMATION
  Report Type: Spontaneous
  Country: SE (occurrence: SE)
  Receive Date: 20170404
  Receipt Date: 20170404
  Transmission Date: 20170830
  Serious: Yes (Other)
  Sender: FDA-Public Use
  Company Number: SE-MERCK KGAA-1064961

PATIENT
  Age: 52 Year
  Sex: Female

DRUGS (2)
  1. NOVOTHYROX [Suspect]
     Active Substance: LEVOTHYROXINE SODIUM
     Indication: PRODUCT USED FOR UNKNOWN INDICATION
  2. LEVAXIN [Suspect]
     Active Substance: LEVOTHYROXINE SODIUM
     Dates: start: 20160706

REACTIONS (3)
  - Dysphagia [Recovered/Resolved]
  - Anxiety [Recovered/Resolved]
  - Myalgia [Recovered/Resolved]

NARRATIVE: CASE EVENT DATE: 20160802
